FAERS Safety Report 6642186-4 (Version None)
Quarter: 2010Q1

REPORT INFORMATION
  Report Type: 
  Country: None (occurrence: None)
  Receive Date: 20100319
  Receipt Date: 20100308
  Transmission Date: 20100710
  Serious: Yes (Other)
  Sender: FDA-Public Use
  Company Number: US-PFIZER INC-2010030627

PATIENT
  Sex: Female

DRUGS (2)
  1. LIPITOR [Suspect]
  2. FOSAMAX [Suspect]
     Indication: BONE DISORDER

REACTIONS (3)
  - BLOOD CHOLESTEROL INCREASED [None]
  - MYALGIA [None]
  - MYOSITIS [None]
